FAERS Safety Report 6291274-3 (Version None)
Quarter: 2009Q3

REPORT INFORMATION
  Report Type: 
  Country: None (occurrence: None)
  Receive Date: 20090728
  Receipt Date: 20090728
  Transmission Date: 20100115
  Serious: Yes (Other)
  Sender: FDA-Public Use
  Company Number: None

PATIENT
  Age: 52 Year
  Sex: Female
  Weight: 72.5755 kg

DRUGS (1)
  1. TOPIRAMATE [Suspect]
     Indication: MIGRAINE
     Dates: start: 20090601, end: 20090728

REACTIONS (7)
  - CONSTIPATION [None]
  - DEPRESSION [None]
  - DRUG EFFECT DECREASED [None]
  - FEELING ABNORMAL [None]
  - MIGRAINE [None]
  - PRODUCT SUBSTITUTION ISSUE [None]
  - WEIGHT INCREASED [None]
